FAERS Safety Report 9461418 (Version 1)
Quarter: 2013Q3

REPORT INFORMATION
  Report Type: Spontaneous
  Country: US (occurrence: None)
  Receive Date: 20130814
  Receipt Date: 20130814
  Transmission Date: 20140515
  Serious: Yes (Hospitalization)
  Sender: FDA-Public Use
  Company Number: None

PATIENT
  Age: 70 Year
  Sex: Male

DRUGS (1)
  1. NUCYNTA ER [Suspect]
     Indication: PAIN
     Dates: start: 20130801, end: 20130807

REACTIONS (6)
  - Sleep terror [None]
  - Hyperhidrosis [None]
  - Cold sweat [None]
  - Incoherent [None]
  - Headache [None]
  - Sinus disorder [None]
